FAERS Safety Report 4380004-8 (Version None)
Quarter: 2004Q2

REPORT INFORMATION
  Report Type: 
  Country: None (occurrence: None)
  Receive Date: 20040614
  Receipt Date: 20040601
  Transmission Date: 20050107
  Serious: Yes (Death)
  Sender: FDA-Public Use
  Company Number: AU-JNJFOC-20040600398

PATIENT
  Sex: Female

DRUGS (1)
  1. DURAGESIC [Suspect]
     Indication: ANALGESIC EFFECT
     Dosage: SEE IMAGE
     Route: 062

REACTIONS (1)
  - DRUG INEFFECTIVE [None]
